FAERS Safety Report 9943408 (Version 2)
Quarter: 2014Q1

REPORT INFORMATION
  Report Type: Report from Study
  Country: US (occurrence: US)
  Receive Date: 20140303
  Receipt Date: 20140303
  Transmission Date: 20141002
  Serious: No
  Sender: FDA-Public Use
  Company Number: US-ABBVIE-08P-163-0474476-00

PATIENT
  Age: 45 Year
  Sex: Female
  Weight: 95.34 kg

DRUGS (8)
  1. HUMIRA [Suspect]
     Indication: CROHN^S DISEASE
     Route: 058
     Dates: start: 200701, end: 200707
  2. HUMIRA [Suspect]
  3. ENTOCORT EC [Concomitant]
     Indication: CROHN^S DISEASE
  4. HYDROCHLORTHIAZID [Concomitant]
     Indication: DIURETIC THERAPY
  5. RAMIPRIL [Concomitant]
     Indication: HYPERTENSION
  6. AZURETTE [Concomitant]
     Indication: CONTRACEPTION
  7. MULTIVITAMIN [Concomitant]
     Indication: SUPPLEMENTATION THERAPY
  8. CALCIUM + VITAMIN D [Concomitant]
     Indication: SUPPLEMENTATION THERAPY

REACTIONS (6)
  - Tinea infection [Recovered/Resolved]
  - Cough [Not Recovered/Not Resolved]
  - Fatigue [Not Recovered/Not Resolved]
  - Crohn^s disease [Not Recovered/Not Resolved]
  - Influenza [Recovering/Resolving]
  - Bronchitis [Recovering/Resolving]
